FAERS Safety Report 8160359-9 (Version None)
Quarter: 2012Q1

REPORT INFORMATION
  Report Type: 
  Country: None (occurrence: None)
  Receive Date: 20120223
  Receipt Date: 20120220
  Transmission Date: 20120608
  Serious: Yes (Other)
  Sender: FDA-Public Use
  Company Number: US-BAYER-2012-012283

PATIENT
  Sex: Female
  Weight: 77 kg

DRUGS (6)
  1. ASPIRIN [Suspect]
     Indication: ANALGESIC THERAPY
     Dosage: 500 MG, ONCE
     Route: 048
  2. ASPIRIN [Concomitant]
     Dosage: 2 DF, BID
     Route: 048
  3. GLYBURIDE [Concomitant]
  4. OMEPRAZOLE [Concomitant]
  5. METFORMIN HCL [Concomitant]
  6. SIMVASTATIN [Concomitant]

REACTIONS (1)
  - CHOKING [None]
